FAERS Safety Report 6604160-3 (Version None)
Quarter: 2010Q1

REPORT INFORMATION
  Report Type: 
  Country: None (occurrence: None)
  Receive Date: 20100226
  Receipt Date: 20090615
  Transmission Date: 20100710
  Serious: No
  Sender: FDA-Public Use
  Company Number: A0791582A

PATIENT
  Age: 66 Year
  Sex: Male

DRUGS (4)
  1. LAMICTAL CD [Suspect]
     Indication: BIPOLAR DISORDER
     Dosage: 100MG PER DAY
     Route: 048
     Dates: start: 20080801
  2. EFFEXOR [Concomitant]
  3. PARNATE [Concomitant]
  4. XANAX [Concomitant]

REACTIONS (1)
  - ARTHRALGIA [None]
